FAERS Safety Report 4350895-5 (Version None)
Quarter: 2004Q2

REPORT INFORMATION
  Report Type: 
  Country: None (occurrence: None)
  Receive Date: 20040427
  Receipt Date: 20040413
  Transmission Date: 20050107
  Serious: Yes (Hospitalization)
  Sender: FDA-Public Use
  Company Number: A01200401153

PATIENT
  Age: 73 Year
  Sex: Male

DRUGS (7)
  1. ELOXATIN [Suspect]
     Indication: GASTRIC CANCER
     Dosage: 255 MG OTHER INTRAVENOUS NOS
     Route: 042
     Dates: start: 20040217, end: 20040217
  2. ATORVASTATIN [Concomitant]
  3. PANTOPRAZOLE [Concomitant]
  4. ATENOLOL [Concomitant]
  5. ASPIRIN [Concomitant]
  6. DEXAMETHASONE [Concomitant]
  7. ONDANSETRON HCL [Concomitant]

REACTIONS (3)
  - DYSARTHRIA [None]
  - PARAESTHESIA [None]
  - TRANSIENT ISCHAEMIC ATTACK [None]
